FAERS Safety Report 14351926 (Version 2)
Quarter: 2018Q2

REPORT INFORMATION
  Report Type: Spontaneous
  Country: FR (occurrence: FR)
  Receive Date: 20180104
  Receipt Date: 20180522
  Transmission Date: 20180711
  Serious: Yes (Hospitalization, Other)
  Sender: FDA-Public Use
  Company Number: FR-MYLANLABS-2018M1000232

PATIENT
  Sex: Female

DRUGS (9)
  1. CYTARABINE. [Suspect]
     Active Substance: CYTARABINE
     Dosage: 15 MG, QD
     Route: 037
     Dates: start: 20170829, end: 20170927
  2. PEGASPARGASE [Suspect]
     Active Substance: PEGASPARGASE
     Dosage: 2750 IU,
     Route: 042
     Dates: start: 20171009, end: 20171009
  3. VINCRISTINE [Suspect]
     Active Substance: VINCRISTINE
     Indication: ACUTE LYMPHOCYTIC LEUKAEMIA
     Dosage: 1.6 MG, QD
     Route: 042
     Dates: start: 20170911
  4. 6-MERCAPTOPURINE MONOHYDRATE [Suspect]
     Active Substance: MERCAPTOPURINE
     Indication: ACUTE LYMPHOCYTIC LEUKAEMIA
     Dosage: 66 MG, QD
     Route: 048
     Dates: start: 20170827, end: 20171008
  5. HYDROCORTISONE. [Suspect]
     Active Substance: HYDROCORTISONE
     Indication: ACUTE LYMPHOCYTIC LEUKAEMIA
     Dosage: 15 MG, QD
     Route: 037
     Dates: start: 20170829, end: 20170927
  6. CYTARABINE. [Suspect]
     Active Substance: CYTARABINE
     Indication: ACUTE LYMPHOCYTIC LEUKAEMIA
     Dosage: 83 MG, QD
     Route: 042
     Dates: start: 20170829, end: 20171007
  7. PEGASPARGASE [Suspect]
     Active Substance: PEGASPARGASE
     Indication: ACUTE LYMPHOCYTIC LEUKAEMIA
     Dosage: 2750 IU, QD
     Route: 042
     Dates: start: 20170911, end: 20170911
  8. METHOTREXATE. [Suspect]
     Active Substance: METHOTREXATE
     Indication: ACUTE LYMPHOCYTIC LEUKAEMIA
     Dosage: 12 MG, QD
     Route: 037
     Dates: start: 20170829, end: 20170927
  9. CYCLOPHOSPHAMIDE. [Suspect]
     Active Substance: CYCLOPHOSPHAMIDE
     Indication: ACUTE LYMPHOCYTIC LEUKAEMIA
     Dosage: 1100 MG, QD
     Route: 042
     Dates: start: 20170827, end: 20170925

REACTIONS (3)
  - Pericardial effusion [Recovered/Resolved]
  - Febrile bone marrow aplasia [Recovered/Resolved]
  - Cholecystitis [Recovered/Resolved]

NARRATIVE: CASE EVENT DATE: 20171016
